FAERS Safety Report 14868650 (Version 1)
Quarter: 2018Q2

REPORT INFORMATION
  Report Type: Spontaneous
  Country: US (occurrence: US)
  Receive Date: 20180509
  Receipt Date: 20180509
  Transmission Date: 20180711
  Serious: No
  Sender: FDA-Public Use
  Company Number: US-ASTRAZENECA-2018SE47215

PATIENT
  Age: 26207 Day
  Sex: Female
  Weight: 113.4 kg

DRUGS (2)
  1. SYMBICORT [Suspect]
     Active Substance: BUDESONIDE\FORMOTEROL FUMARATE DIHYDRATE
     Indication: BRONCHITIS CHRONIC
     Dosage: 160/4.5 MCG TWO INHALATIONS TWICE A DAY
     Route: 055
  2. ASPRIN [Concomitant]
     Active Substance: ASPIRIN

REACTIONS (6)
  - Chest discomfort [Recovering/Resolving]
  - Dyspnoea [Recovering/Resolving]
  - Symptom recurrence [Recovering/Resolving]
  - Product quality issue [Recovering/Resolving]
  - Intentional product misuse [Unknown]
  - Drug ineffective [Recovering/Resolving]

NARRATIVE: CASE EVENT DATE: 201803
